FAERS Safety Report 6356787-4 (Version None)
Quarter: 2009Q3

REPORT INFORMATION
  Report Type: 
  Country: None (occurrence: None)
  Receive Date: 20090915
  Receipt Date: 20090906
  Transmission Date: 20100115
  Serious: Yes (Other)
  Sender: FDA-Public Use
  Company Number: US-AMGEN-QUU363408

PATIENT
  Sex: Female

DRUGS (3)
  1. ENBREL [Suspect]
     Indication: PSORIATIC ARTHROPATHY
     Route: 058
     Dates: start: 20090624
  2. ENBREL [Suspect]
     Indication: PUSTULAR PSORIASIS
  3. ENBREL [Suspect]
     Indication: PSORIASIS

REACTIONS (21)
  - DEAFNESS UNILATERAL [None]
  - DRUG INEFFECTIVE [None]
  - EAR INFECTION [None]
  - HYPOAESTHESIA FACIAL [None]
  - HYPOAESTHESIA ORAL [None]
  - INJECTION SITE ERYTHEMA [None]
  - INJECTION SITE IRRITATION [None]
  - INJECTION SITE OEDEMA [None]
  - INJECTION SITE PAIN [None]
  - INJECTION SITE PRURITUS [None]
  - INJECTION SITE RASH [None]
  - LIP SWELLING [None]
  - LOCAL SWELLING [None]
  - MENORRHAGIA [None]
  - MENSTRUATION IRREGULAR [None]
  - ONYCHOMADESIS [None]
  - PHARYNGEAL OEDEMA [None]
  - SWELLING FACE [None]
  - SWOLLEN TONGUE [None]
  - URINARY TRACT INFECTION [None]
  - VERTIGO [None]
